FAERS Safety Report 19845602 (Version 1)
Quarter: 2021Q3

REPORT INFORMATION
  Report Type: Spontaneous
  Country: US (occurrence: US)
  Receive Date: 20210916
  Receipt Date: 20210916
  Transmission Date: 20211014
  Serious: No
  Sender: FDA-Public Use
  Company Number: US-BAYER-2021-211389

PATIENT
  Age: 27 Year
  Sex: Male

DRUGS (2)
  1. CLARITIN [Suspect]
     Active Substance: LORATADINE
     Indication: RASH ERYTHEMATOUS
  2. CLARITIN [Suspect]
     Active Substance: LORATADINE
     Indication: THERAPEUTIC SKIN CARE TOPICAL
     Dosage: N/A

REACTIONS (1)
  - Drug ineffective for unapproved indication [Unknown]
